FAERS Safety Report 19641771 (Version 1)
Quarter: 2021Q3

REPORT INFORMATION
  Report Type: Spontaneous
  Country: FI (occurrence: FI)
  Receive Date: 20210730
  Receipt Date: 20210730
  Transmission Date: 20211014
  Serious: Yes (Congenital Anomaly)
  Sender: FDA-Public Use
  Company Number: FI-PFIZER INC-2021903653

PATIENT
  Sex: Male

DRUGS (1)
  1. VENLAFAXINE HCL [Suspect]
     Active Substance: VENLAFAXINE HYDROCHLORIDE
     Indication: MENTAL DISORDER
     Dosage: 225 MG, DAILY
     Route: 064

REACTIONS (6)
  - Maternal exposure during pregnancy [Recovered/Resolved with Sequelae]
  - Speech disorder developmental [Recovered/Resolved with Sequelae]
  - Muscle twitching [Recovered/Resolved with Sequelae]
  - Foetal hypokinesia [Recovered/Resolved with Sequelae]
  - Drug withdrawal syndrome neonatal [Recovered/Resolved with Sequelae]
  - Fatigue [Recovered/Resolved with Sequelae]
